FAERS Safety Report 18506369 (Version 50)
Quarter: 2025Q1

REPORT INFORMATION
  Report Type: Report from Study
  Country: CA (occurrence: CA)
  Receive Date: 20201116
  Receipt Date: 20250109
  Transmission Date: 20250408
  Serious: Yes (Hospitalization, Other)
  Sender: TAKEDA
  Company Number: CA-TAKEDA-CA202003996

PATIENT
  Age: 41 Year
  Sex: Female

DRUGS (41)
  1. ICATIBANT [Suspect]
     Active Substance: ICATIBANT ACETATE
     Indication: Hereditary angioedema with normal C1 esterase inhibitor
  2. ICATIBANT [Suspect]
     Active Substance: ICATIBANT ACETATE
  3. ICATIBANT [Suspect]
     Active Substance: ICATIBANT ACETATE
  4. ICATIBANT [Suspect]
     Active Substance: ICATIBANT ACETATE
  5. ICATIBANT [Suspect]
     Active Substance: ICATIBANT ACETATE
  6. ICATIBANT [Suspect]
     Active Substance: ICATIBANT ACETATE
  7. ICATIBANT [Suspect]
     Active Substance: ICATIBANT ACETATE
  8. ICATIBANT [Suspect]
     Active Substance: ICATIBANT ACETATE
  9. ICATIBANT [Suspect]
     Active Substance: ICATIBANT ACETATE
  10. ICATIBANT [Suspect]
     Active Substance: ICATIBANT ACETATE
  11. ICATIBANT [Suspect]
     Active Substance: ICATIBANT ACETATE
  12. ICATIBANT [Suspect]
     Active Substance: ICATIBANT ACETATE
  13. ICATIBANT [Suspect]
     Active Substance: ICATIBANT ACETATE
  14. ICATIBANT [Suspect]
     Active Substance: ICATIBANT ACETATE
  15. ICATIBANT [Suspect]
     Active Substance: ICATIBANT ACETATE
  16. ICATIBANT [Suspect]
     Active Substance: ICATIBANT ACETATE
  17. CINRYZE [Suspect]
     Active Substance: HUMAN C1-ESTERASE INHIBITOR
     Indication: Hereditary angioedema
  18. CINRYZE [Suspect]
     Active Substance: HUMAN C1-ESTERASE INHIBITOR
  19. CINRYZE [Suspect]
     Active Substance: HUMAN C1-ESTERASE INHIBITOR
  20. HUMAN C1-ESTERASE INHIBITOR [Suspect]
     Active Substance: HUMAN C1-ESTERASE INHIBITOR
     Indication: Hereditary angioedema
  21. HUMAN C1-ESTERASE INHIBITOR [Suspect]
     Active Substance: HUMAN C1-ESTERASE INHIBITOR
  22. HUMAN C1-ESTERASE INHIBITOR [Suspect]
     Active Substance: HUMAN C1-ESTERASE INHIBITOR
  23. MODERNA COVID-19 VACCINE [Suspect]
     Active Substance: ELASOMERAN
     Indication: COVID-19 immunisation
  24. COMIRNATY (TOZINAMERAN) [Suspect]
     Active Substance: TOZINAMERAN
     Indication: COVID-19 immunisation
  25. PFIZER-BIONTECH COVID-19 VACCINE [Suspect]
     Active Substance: TOZINAMERAN
     Indication: COVID-19 immunisation
  26. CELEBREX [Suspect]
     Active Substance: CELECOXIB
     Indication: Product used for unknown indication
  27. CYKLOKAPRON [Concomitant]
     Active Substance: TRANEXAMIC ACID
     Indication: Product used for unknown indication
     Dosage: 1000 MILLIGRAM, BID
     Dates: start: 20160101, end: 20171213
  28. CYKLOKAPRON [Concomitant]
     Active Substance: TRANEXAMIC ACID
     Dosage: 1000 MILLIGRAM, BID
     Dates: start: 20181210
  29. CYKLOKAPRON [Concomitant]
     Active Substance: TRANEXAMIC ACID
  30. ONDANSETRON [Concomitant]
     Active Substance: ONDANSETRON
     Indication: Nausea
  31. XARELTO [Concomitant]
     Active Substance: RIVAROXABAN
     Indication: Product used for unknown indication
  32. FRAGMIN [Concomitant]
     Active Substance: DALTEPARIN SODIUM
     Indication: Thrombophlebitis
  33. DILAUDID [Concomitant]
     Active Substance: HYDROMORPHONE HYDROCHLORIDE
     Indication: Product used for unknown indication
  34. BERINERT [Concomitant]
     Active Substance: HUMAN C1-ESTERASE INHIBITOR
     Indication: Product used for unknown indication
     Dosage: 1500 INTERNATIONAL UNIT, 1/WEEK
     Dates: start: 20160101
  35. SYMBICORT [Concomitant]
     Active Substance: BUDESONIDE\FORMOTEROL FUMARATE DIHYDRATE
  36. WELLBUTRIN [Concomitant]
     Active Substance: BUPROPION HYDROCHLORIDE
  37. RUPATADINE FUMARATE [Concomitant]
     Active Substance: RUPATADINE FUMARATE
  38. RUPATADINE FUMARATE [Concomitant]
     Active Substance: RUPATADINE FUMARATE
  39. RYBELSUS [Concomitant]
     Active Substance: SEMAGLUTIDE
  40. EPIPEN [Concomitant]
     Active Substance: EPINEPHRINE
  41. SYNTHROID [Concomitant]
     Active Substance: LEVOTHYROXINE SODIUM

REACTIONS (53)
  - Foreign body in throat [Not Recovered/Not Resolved]
  - Insomnia [Recovered/Resolved]
  - Syncope [Recovered/Resolved]
  - Skin laceration [Unknown]
  - Road traffic accident [Unknown]
  - Upper limb fracture [Unknown]
  - Breast mass [Not Recovered/Not Resolved]
  - Influenza [Unknown]
  - Thrombophlebitis [Not Recovered/Not Resolved]
  - Wrist fracture [Unknown]
  - Bladder disorder [Unknown]
  - Suspected COVID-19 [Unknown]
  - Asthenia [Unknown]
  - Concussion [Unknown]
  - Vomiting [Recovered/Resolved]
  - Loss of consciousness [Unknown]
  - Type 2 diabetes mellitus [Unknown]
  - Hereditary angioedema [Recovered/Resolved]
  - Haemorrhage [Recovering/Resolving]
  - Anaphylactic shock [Unknown]
  - Nausea [Unknown]
  - Fall [Recovered/Resolved]
  - Wound infection [Not Recovered/Not Resolved]
  - Muscular weakness [Unknown]
  - Decreased appetite [Recovered/Resolved]
  - Fibromyalgia [Unknown]
  - Food allergy [Recovered/Resolved]
  - Stress [Recovered/Resolved]
  - Arthropod bite [Not Recovered/Not Resolved]
  - Incision site complication [Unknown]
  - Dyspnoea [Recovered/Resolved]
  - Fatigue [Recovered/Resolved]
  - Anaphylactic reaction [Recovered/Resolved]
  - Abdominal distension [Unknown]
  - Off label use [Recovered/Resolved]
  - Localised infection [Recovered/Resolved]
  - Synovial rupture [Unknown]
  - Tympanic membrane perforation [Recovered/Resolved]
  - Contusion [Recovered/Resolved]
  - Drug ineffective [Unknown]
  - Head injury [Not Recovered/Not Resolved]
  - Heart rate increased [Unknown]
  - Amnesia [Unknown]
  - Blister [Recovering/Resolving]
  - Hypoglycaemia [Recovering/Resolving]
  - Tremor [Recovering/Resolving]
  - Palpitations [Recovering/Resolving]
  - Blister rupture [Recovering/Resolving]
  - Periarthritis [Unknown]
  - Product availability issue [Unknown]
  - Product use issue [Recovered/Resolved]
  - COVID-19 [Unknown]
  - Dizziness [Recovered/Resolved]

NARRATIVE: CASE EVENT DATE: 20160901
